FAERS Safety Report 15896843 (Version 2)
Quarter: 2019Q1

REPORT INFORMATION
  Report Type: Spontaneous
  Country: JP (occurrence: JP)
  Receive Date: 20190131
  Receipt Date: 20190305
  Transmission Date: 20190417
  Serious: Yes (Hospitalization)
  Sender: FDA-Public Use
  Company Number: JP-ASTRAZENECA-2019SE16726

PATIENT
  Age: 14091 Day
  Sex: Female
  Weight: 47 kg

DRUGS (12)
  1. DEXART [Concomitant]
     Active Substance: DEXAMETHASONE SODIUM PHOSPHATE
     Indication: VOMITING
     Route: 042
     Dates: start: 20190103, end: 20190106
  2. DECADRON [Concomitant]
     Active Substance: DEXAMETHASONE
     Indication: VOMITING
     Route: 048
     Dates: start: 20190107, end: 20190109
  3. DECADRON [Concomitant]
     Active Substance: DEXAMETHASONE
     Indication: VOMITING
     Route: 048
     Dates: start: 20190113
  4. ZYPREXA [Concomitant]
     Active Substance: OLANZAPINE
     Indication: VOMITING
     Dosage: 5.0MG AS REQUIRED
     Route: 048
  5. DECADRON [Concomitant]
     Active Substance: DEXAMETHASONE
     Indication: VOMITING
     Route: 048
     Dates: start: 20190110, end: 20190112
  6. GRANISETRON [Concomitant]
     Active Substance: GRANISETRON
     Indication: PROPHYLAXIS OF NAUSEA AND VOMITING
     Route: 048
     Dates: start: 20181228, end: 20181229
  7. DEXART [Concomitant]
     Active Substance: DEXAMETHASONE SODIUM PHOSPHATE
     Indication: VOMITING
     Route: 042
     Dates: start: 20181230, end: 20190102
  8. GRANISETRON [Concomitant]
     Active Substance: GRANISETRON
     Indication: VOMITING
     Route: 048
     Dates: start: 20181228, end: 20181229
  9. SHINLUCK [Concomitant]
     Active Substance: SODIUM PICOSULFATE
     Dosage: 10.0DF AS REQUIRED
     Route: 065
     Dates: start: 20181228
  10. NEXIUM [Suspect]
     Active Substance: ESOMEPRAZOLE MAGNESIUM
     Indication: NAUSEA
     Route: 048
     Dates: start: 20181230, end: 20190115
  11. XALKORI [Suspect]
     Active Substance: CRIZOTINIB
     Indication: NON-SMALL CELL LUNG CANCER
     Route: 048
     Dates: start: 20181228, end: 20190115
  12. TERPERAN [Concomitant]
     Active Substance: METOCLOPRAMIDE HYDROCHLORIDE
     Indication: PROPHYLAXIS OF NAUSEA AND VOMITING
     Route: 048
     Dates: start: 20181228, end: 20190115

REACTIONS (12)
  - Alanine aminotransferase increased [Unknown]
  - Rash [Recovered/Resolved]
  - Pruritus [Recovered/Resolved]
  - Aspartate aminotransferase increased [Unknown]
  - Eosinophil count increased [Recovered/Resolved]
  - Malaise [Unknown]
  - Eczema [Unknown]
  - Constipation [Recovering/Resolving]
  - Off label use [Unknown]
  - Hepatic function abnormal [Recovering/Resolving]
  - Intentional product use issue [Unknown]
  - Pyrexia [Unknown]

NARRATIVE: CASE EVENT DATE: 20190115
